FAERS Safety Report 25309872 (Version 2)
Quarter: 2025Q3

REPORT INFORMATION
  Report Type: Report from Study
  Country: US (occurrence: US)
  Receive Date: 20250514
  Receipt Date: 20250802
  Transmission Date: 20251021
  Serious: Yes (Hospitalization)
  Sender: ALEXION PHARMACEUTICALS
  Company Number: US-AstraZeneca-CH-00865752A

PATIENT
  Age: 70 Year
  Sex: Female

DRUGS (1)
  1. CAPIVASERTIB [Suspect]
     Active Substance: CAPIVASERTIB
     Indication: Breast cancer female
     Dosage: 400 MILLIGRAM, BID
     Dates: start: 20250325

REACTIONS (8)
  - Arrhythmia [Unknown]
  - Atrial fibrillation [Unknown]
  - Ventricular arrhythmia [Unknown]
  - Hepatic enzyme increased [Unknown]
  - Dehydration [Unknown]
  - Blood glucose increased [Unknown]
  - Fatigue [Unknown]
  - Dyspnoea [Unknown]

NARRATIVE: CASE EVENT DATE: 20250508
